FAERS Safety Report 18479858 (Version 1)
Quarter: 2020Q4

REPORT INFORMATION
  Report Type: Spontaneous
  Country: ES (occurrence: ES)
  Receive Date: 20201109
  Receipt Date: 20201109
  Transmission Date: 20210114
  Serious: Yes (Other)
  Sender: FDA-Public Use
  Company Number: ES-ACCORD-207953

PATIENT
  Age: 72 Year
  Sex: Female

DRUGS (3)
  1. CISPLATIN. [Suspect]
     Active Substance: CISPLATIN
     Indication: METASTASES TO PERITONEUM
     Dosage: 75 MG/M2
     Route: 033
  2. CARBOPLATIN. [Concomitant]
     Active Substance: CARBOPLATIN
     Indication: METASTASES TO PERITONEUM
     Dosage: 5 CYCLES   NEOADJUVANT TREATMENT
  3. PACLITAXEL. [Concomitant]
     Active Substance: PACLITAXEL
     Indication: METASTASES TO PERITONEUM
     Dosage: AUC5-PACLITAXEL  NEOADJUVANT TREATMENT

REACTIONS (2)
  - Off label use [Unknown]
  - Stress cardiomyopathy [Recovered/Resolved]
